FAERS Safety Report 11223147 (Version 1)
Quarter: 2015Q2

REPORT INFORMATION
  Report Type: Report from Study
  Country: US (occurrence: US)
  Receive Date: 20150626
  Receipt Date: 20150626
  Transmission Date: 20150821
  Serious: Yes (Hospitalization)
  Sender: FDA-Public Use
  Company Number: US-ACTELION-A-NJ2014-103283

PATIENT
  Age: 43 Year
  Sex: Female

DRUGS (18)
  1. FUROSEMIDE. [Concomitant]
     Active Substance: FUROSEMIDE
     Dosage: 60 MG, BID
     Route: 048
     Dates: start: 20140408
  2. SPIRONOLACTONE. [Concomitant]
     Active Substance: SPIRONOLACTONE
     Dosage: 50 MG, QPM
     Route: 048
     Dates: start: 20140304
  3. ZESTRIL [Concomitant]
     Active Substance: LISINOPRIL
     Dosage: 2.5 MG, QD
     Route: 048
     Dates: start: 20140303
  4. PROAIR HFA [Concomitant]
     Active Substance: ALBUTEROL SULFATE
     Dosage: UNK
     Dates: start: 20111128
  5. TRACLEER [Concomitant]
     Active Substance: BOSENTAN\BOSENTAN MONOHYDRATE
     Indication: COR PULMONALE CHRONIC
     Dosage: 125 MG, BID
     Route: 048
     Dates: start: 20110105
  6. XARELTO [Concomitant]
     Active Substance: RIVAROXABAN
     Dosage: 15 MG, BID
     Dates: start: 20140716
  7. TRAMADOL [Concomitant]
     Active Substance: TRAMADOL
     Dosage: 50 MG, BID
     Dates: start: 20140407
  8. VELETRI [Suspect]
     Active Substance: EPOPROSTENOL
     Indication: PULMONARY ARTERIAL HYPERTENSION
     Dosage: 60 NG/KG, PER MIN
     Route: 042
     Dates: start: 20130410
  9. COUMADIN [Concomitant]
     Active Substance: WARFARIN SODIUM
  10. OPSUMIT [Suspect]
     Active Substance: MACITENTAN
     Indication: PULMONARY ARTERIAL HYPERTENSION
     Dosage: 10 MG, UNK
     Route: 048
  11. MAGNESIUM OXIDE. [Concomitant]
     Active Substance: MAGNESIUM OXIDE
     Dosage: 400 MG, QAM
     Route: 048
     Dates: start: 20131202
  12. GABAPENTIN. [Concomitant]
     Active Substance: GABAPENTIN
     Dosage: 800 MG, TID
     Route: 048
     Dates: start: 20140812
  13. NORCO [Concomitant]
     Active Substance: ACETAMINOPHEN\HYDROCODONE BITARTRATE
     Dosage: 325 MG, Q6HRS
     Route: 048
     Dates: start: 20140722
  14. ATARAX [Concomitant]
     Active Substance: HYDROXYZINE\HYDROXYZINE HYDROCHLORIDE
     Dosage: UNK, Q6HRS
     Route: 048
     Dates: start: 20140716
  15. ELAVIL [Concomitant]
     Active Substance: AMITRIPTYLINE HYDROCHLORIDE
     Dosage: 50 MG, QPM
     Route: 048
     Dates: start: 20140203
  16. IRON [Concomitant]
     Active Substance: IRON
     Dosage: UNK
     Dates: start: 20131202
  17. OMEPRAZOLE. [Concomitant]
     Active Substance: OMEPRAZOLE
     Dosage: 40 MG, QAM
     Route: 048
     Dates: start: 20130925
  18. ATROVENT [Concomitant]
     Active Substance: IPRATROPIUM BROMIDE
     Dosage: UNK
     Dates: start: 20081024

REACTIONS (7)
  - Device related infection [Unknown]
  - Rash generalised [Recovered/Resolved]
  - Blood culture negative [Recovered/Resolved]
  - Device malfunction [Recovered/Resolved]
  - Catheter site infection [Recovered/Resolved]
  - Catheter placement [Recovered/Resolved]
  - Cellulitis [Recovered/Resolved]
